FAERS Safety Report 10622040 (Version 1)
Quarter: 2014Q4

REPORT INFORMATION
  Report Type: Spontaneous
  Country: BR (occurrence: BR)
  Receive Date: 20141203
  Receipt Date: 20141203
  Transmission Date: 20150529
  Serious: Yes (Other)
  Sender: FDA-Public Use
  Company Number: BR-SHIRE-BR201408413

PATIENT
  Age: 13 Year
  Sex: Male
  Weight: 46 kg

DRUGS (3)
  1. FLUOXETINE [Concomitant]
     Active Substance: FLUOXETINE\FLUOXETINE HYDROCHLORIDE
     Indication: MOOD ALTERED
     Dosage: 15 MG, UNKNOWN
     Route: 065
     Dates: start: 2010
  2. VENVANSE [Suspect]
     Active Substance: LISDEXAMFETAMINE DIMESYLATE
     Indication: ATTENTION DEFICIT/HYPERACTIVITY DISORDER
     Dosage: 30 MG, UNKNOWN
     Route: 048
     Dates: start: 201303
  3. DEPAKOTE [Concomitant]
     Active Substance: DIVALPROEX SODIUM
     Indication: MOOD ALTERED
     Dosage: 750 MG, UNKNOWN
     Route: 065
     Dates: start: 201303

REACTIONS (9)
  - Delusion [Recovering/Resolving]
  - Pain [Recovered/Resolved]
  - Negativism [Recovering/Resolving]
  - Disturbance in social behaviour [Recovering/Resolving]
  - Hallucination [Recovered/Resolved]
  - Weight decreased [Recovered/Resolved]
  - Abnormal behaviour [Recovering/Resolving]
  - Emotional distress [Recovering/Resolving]
  - Unevaluable event [Recovering/Resolving]

NARRATIVE: CASE EVENT DATE: 201303
